FAERS Safety Report 8123215-8 (Version None)
Quarter: 2012Q1

REPORT INFORMATION
  Report Type: 
  Country: None (occurrence: None)
  Receive Date: 20120208
  Receipt Date: 20120131
  Transmission Date: 20120608
  Serious: Yes (Hospitalization)
  Sender: FDA-Public Use
  Company Number: DE-TEVA-317143GER

PATIENT
  Sex: Male

DRUGS (1)
  1. CLINDAMYCIN [Suspect]
     Route: 048

REACTIONS (6)
  - DYSPHONIA [None]
  - FOREIGN BODY [None]
  - LARYNX IRRITATION [None]
  - DYSPNOEA [None]
  - LARYNGEAL OEDEMA [None]
  - LARYNGEAL INFLAMMATION [None]
